FAERS Safety Report 5417114-X (Version None)
Quarter: 2007Q3

REPORT INFORMATION
  Report Type: 
  Country: None (occurrence: None)
  Receive Date: 20070718
  Receipt Date: 20070320
  Transmission Date: 20080115
  Serious: Yes (Other)
  Sender: FDA-Public Use
  Company Number: 2007022891

PATIENT
  Age: 55 Year
  Sex: Female
  Weight: 61.2 kg

DRUGS (2)
  1. CELEBREX [Suspect]
     Indication: ARTHRALGIA
     Dosage: 200 MG (200 MG,1 IN 1 D)
     Dates: start: 20020108, end: 20041228
  2. CELEBREX [Suspect]
     Indication: FOOT FRACTURE
     Dosage: 200 MG (200 MG,1 IN 1 D)
     Dates: start: 20020108, end: 20041228

REACTIONS (1)
  - CEREBROVASCULAR ACCIDENT [None]
